FAERS Safety Report 22217033 (Version 1)
Quarter: 2023Q2

REPORT INFORMATION
  Report Type: Report from Study
  Country: CA (occurrence: CA)
  Receive Date: 20230417
  Receipt Date: 20230417
  Transmission Date: 20230721
  Serious: Yes (Other)
  Sender: FDA-Public Use
  Company Number: CA-JNJFOC-20210948781

PATIENT
  Sex: Male
  Weight: 78.47 kg

DRUGS (4)
  1. REMICADE [Suspect]
     Active Substance: INFLIXIMAB
     Indication: Juvenile idiopathic arthritis
     Dosage: THERAPY START DATE: //2014. CHANGING ORDER TO REFLECT ADULT REMICADE PROTOCOL. NEEDS APPROVAL TO CON
     Route: 042
     Dates: start: 20110701
  2. REMICADE [Suspect]
     Active Substance: INFLIXIMAB
     Indication: Rheumatoid arthritis
     Route: 041
  3. REMICADE [Suspect]
     Active Substance: INFLIXIMAB
     Route: 042
  4. NAPROSYN [Suspect]
     Active Substance: NAPROXEN
     Indication: Back pain
     Route: 065

REACTIONS (6)
  - Rheumatoid arthritis [Unknown]
  - Juvenile idiopathic arthritis [Not Recovered/Not Resolved]
  - Nightmare [Unknown]
  - Insomnia [Unknown]
  - Back pain [Unknown]
  - Abdominal discomfort [Unknown]
